FAERS Safety Report 7702218-9 (Version None)
Quarter: 2011Q3

REPORT INFORMATION
  Report Type: 
  Country: None (occurrence: None)
  Receive Date: 20110822
  Receipt Date: 20110808
  Transmission Date: 20111222
  Serious: Yes (Other)
  Sender: FDA-Public Use
  Company Number: DE-BAYER-2011-035402

PATIENT
  Sex: Male
  Weight: 71 kg

DRUGS (1)
  1. ACETYLSALICYLIC ACID SRT [Suspect]
     Indication: PERIPHERAL VASCULAR DISORDER
     Dosage: 81 MG, UNK
     Route: 048
     Dates: end: 20110215

REACTIONS (2)
  - MUSCLE SPASMS [None]
  - SYNCOPE [None]
